FAERS Safety Report 9394006 (Version 1)
Quarter: 2013Q3

REPORT INFORMATION
  Report Type: Spontaneous
  Country: GB (occurrence: GB)
  Receive Date: 20130710
  Receipt Date: 20130710
  Transmission Date: 20140515
  Serious: Yes (Other)
  Sender: FDA-Public Use
  Company Number: GB-MYLANLABS-2013S1014544

PATIENT
  Age: 72 Year
  Sex: Female

DRUGS (3)
  1. TAMOXIFEN [Suspect]
     Indication: BREAST CANCER
     Route: 048
     Dates: end: 2012
  2. ATENOLOL [Concomitant]
     Indication: HYPERTENSION
  3. ENALAPRIL [Concomitant]
     Indication: HYPERTENSION

REACTIONS (1)
  - Acute lymphocytic leukaemia [Unknown]
